FAERS Safety Report 7423594-0 (Version None)
Quarter: 2011Q2

REPORT INFORMATION
  Report Type: 
  Country: None (occurrence: None)
  Receive Date: 20110419
  Receipt Date: 20110406
  Transmission Date: 20111010
  Serious: Yes (Hospitalization, Other)
  Sender: FDA-Public Use
  Company Number: JP-ASTRAZENECA-2011SE12892

PATIENT
  Age: 53 Year
  Sex: Male

DRUGS (27)
  1. OMEPRAL [Concomitant]
     Route: 042
     Dates: start: 20110209
  2. MARZULENE [Concomitant]
     Route: 048
     Dates: start: 20110209
  3. FUNGIZONE [Concomitant]
     Route: 048
     Dates: start: 20110209
  4. NEUART [Concomitant]
     Route: 042
     Dates: start: 20110206, end: 20110208
  5. MEROPENEM [Suspect]
     Indication: FEBRILE NEUTROPENIA
     Route: 042
     Dates: start: 20110209, end: 20110209
  6. MEROPENEM [Suspect]
     Route: 042
     Dates: start: 20110214, end: 20110214
  7. KENKETSU VENOGLOBULIN-IH [Concomitant]
     Route: 042
     Dates: start: 20110207, end: 20110209
  8. DOPAMINE HYDROCHLORIDE [Concomitant]
     Dates: start: 20110207
  9. NOREPINEPHRINE BITARTRATE [Concomitant]
     Dates: start: 20110207
  10. CONCENTRATED HUMAN PLATELETS [Concomitant]
     Dates: start: 20110207
  11. FUNGUARD [Concomitant]
     Dates: start: 20110209
  12. VERAPAMIL HCL [Concomitant]
     Dates: start: 20110210, end: 20110210
  13. DORMICUM [Concomitant]
     Dates: start: 20110205
  14. PROPOFOL [Concomitant]
     Dates: start: 20110205
  15. MEROPENEM [Suspect]
     Route: 042
     Dates: start: 20110210, end: 20110213
  16. HUMULIN R [Concomitant]
     Dates: start: 20110206
  17. DIGOSIN [Concomitant]
     Route: 042
     Dates: start: 20110211
  18. REMINARON [Concomitant]
     Dates: start: 20110206
  19. FRESH FROZEN HUMAN PLASMA [Concomitant]
     Dates: start: 20110207
  20. SOL-MELCORT [Concomitant]
     Route: 042
     Dates: start: 20110209
  21. POLYMYXIN-B-SULFATE [Concomitant]
     Route: 048
     Dates: start: 20110209
  22. CONCENTRATED HUMAN RED BLOOD CELLS [Concomitant]
     Dates: start: 20110207
  23. BOSMIN [Concomitant]
     Dates: start: 20110214
  24. SOLYUGEN F [Concomitant]
     Dates: start: 20110205
  25. BIOFERMIN R [Concomitant]
     Route: 048
     Dates: start: 20110209
  26. RIKKUNSHI-TO [Concomitant]
     Route: 048
     Dates: start: 20110209
  27. PENTAZOCINE LACTATE [Concomitant]
     Dates: start: 20110211, end: 20110211

REACTIONS (5)
  - ANAEMIA [None]
  - PLATELET COUNT DECREASED [None]
  - RENAL IMPAIRMENT [None]
  - HEPATIC FUNCTION ABNORMAL [None]
  - ATRIAL FIBRILLATION [None]
